FAERS Safety Report 9408683 (Version 2)
Quarter: 2013Q3

REPORT INFORMATION
  Report Type: Spontaneous
  Country: US (occurrence: None)
  Receive Date: 20130716
  Receipt Date: 20130726
  Transmission Date: 20140515
  Serious: Yes (Other)
  Sender: FDA-Public Use
  Company Number: AUR-APL-2013-05829

PATIENT
  Age: 4 Decade
  Sex: Male

DRUGS (2)
  1. VENLAFAXINE [Suspect]
     Indication: MAJOR DEPRESSION
  2. LAMOTRIGINE (LAMOTRIGINE) [Concomitant]

REACTIONS (12)
  - Drug withdrawal syndrome [None]
  - Treatment noncompliance [None]
  - Inappropriate schedule of drug administration [None]
  - Sensory disturbance [None]
  - Emotional disorder [None]
  - Headache [None]
  - Nausea [None]
  - Tinnitus [None]
  - Anxiety [None]
  - Hyperacusis [None]
  - Anhedonia [None]
  - Paraesthesia [None]
